FAERS Safety Report 8850178 (Version 2)
Quarter: 2012Q4

REPORT INFORMATION
  Report Type: 
  Country: FR (occurrence: FR)
  Receive Date: 20121019
  Receipt Date: 20121219
  Transmission Date: 20130627
  Serious: Yes (Hospitalization)
  Sender: FDA-Public Use
  Company Number: FR-GLAXOSMITHKLINE-B0837398A

PATIENT
  Age: 86 None
  Sex: Female

DRUGS (22)
  1. ARIXTRA [Suspect]
     Indication: PRODUCT USED FOR UNKNOWN INDICATION
     Route: 065
     Dates: start: 20120704, end: 20120717
  2. AUGMENTIN [Suspect]
     Indication: PRODUCT USED FOR UNKNOWN INDICATION
     Route: 065
     Dates: start: 20120718, end: 20120719
  3. PARIET [Suspect]
     Indication: PRODUCT USED FOR UNKNOWN INDICATION
     Dates: start: 20120710
  4. IMOVANE [Suspect]
     Indication: PRODUCT USED FOR UNKNOWN INDICATION
     Dates: start: 20120704
  5. SERESTA [Suspect]
     Indication: PRODUCT USED FOR UNKNOWN INDICATION
     Dates: start: 20120713
  6. CIPROFLOXACINE [Suspect]
     Indication: PRODUCT USED FOR UNKNOWN INDICATION
     Dates: start: 20120713, end: 20120723
  7. LOVENOX [Suspect]
     Indication: PRODUCT USED FOR UNKNOWN INDICATION
     Dates: start: 20120628, end: 20120723
  8. BETADINE [Concomitant]
     Indication: DERMATITIS
     Dates: start: 201207, end: 20120725
  9. SINTROM [Concomitant]
     Dosage: 4MG See dosage text
     Dates: end: 20120627
  10. ZINNAT [Concomitant]
     Dates: start: 20120629, end: 20120704
  11. FURADANTINE [Concomitant]
     Dates: start: 20120712, end: 20120713
  12. AUGMENTIN [Concomitant]
     Dates: start: 20120713, end: 20120713
  13. DAKIN [Concomitant]
     Dates: start: 20120725
  14. PEVARYL [Concomitant]
     Dates: start: 20120725
  15. CETIRIZINE [Concomitant]
     Dates: start: 20120727
  16. ATARAX [Concomitant]
     Dates: start: 20120805
  17. POLARAMINE [Concomitant]
     Dates: start: 20120805
  18. SOLUPRED [Concomitant]
     Dates: start: 20120805
  19. FLECAINE [Concomitant]
  20. L-THYROXINE [Concomitant]
     Dosage: 9DROP per day
  21. HAVLANE [Concomitant]
  22. LASILIX [Concomitant]
     Indication: ACUTE PULMONARY OEDEMA
     Dates: start: 20120829

REACTIONS (15)
  - Dermatitis exfoliative [Recovered/Resolved]
  - Erythema [Recovered/Resolved]
  - Toxic skin eruption [Unknown]
  - Eosinophilia [Recovered/Resolved with Sequelae]
  - Oedema [Unknown]
  - Wound secretion [Unknown]
  - Lymphadenopathy [Unknown]
  - Drug reaction with eosinophilia and systemic symptoms [Recovered/Resolved with Sequelae]
  - Alopecia [Recovering/Resolving]
  - Skin exfoliation [Unknown]
  - Rash macular [Unknown]
  - Hyperkeratosis [Unknown]
  - Nail disorder [Unknown]
  - Vasodilatation [Unknown]
  - Lichenoid keratosis [Unknown]
